FAERS Safety Report 4883150-5 (Version None)
Quarter: 2006Q1

REPORT INFORMATION
  Report Type: 
  Country: None (occurrence: None)
  Receive Date: 20060117
  Receipt Date: 20060117
  Transmission Date: 20060701
  Serious: Yes (Life-Threatening)
  Sender: FDA-Public Use
  Company Number: None

PATIENT
  Sex: Male
  Weight: 72.5755 kg

DRUGS (4)
  1. SERZONE [Suspect]
     Indication: DYSTHYMIC DISORDER
     Dosage: 100 MG  DAILY  PO
     Route: 048
  2. BUSPAR [Suspect]
     Dosage: 30 MG  DAILY  PO
     Route: 048
  3. EFFEXOR [Concomitant]
  4. TRAZODONE HCL [Concomitant]

REACTIONS (7)
  - ABNORMAL BEHAVIOUR [None]
  - DELUSION [None]
  - EDUCATIONAL PROBLEM [None]
  - HOMICIDAL IDEATION [None]
  - MENTAL IMPAIRMENT [None]
  - SUICIDAL IDEATION [None]
  - TRUANCY [None]
